FAERS Safety Report 4602274-0 (Version None)
Quarter: 2005Q1

REPORT INFORMATION
  Report Type: 
  Country: None (occurrence: None)
  Receive Date: 20050201
  Receipt Date: 20040601
  Transmission Date: 20050727
  Serious: Yes (Other)
  Sender: FDA-Public Use
  Company Number: 200418138BWH

PATIENT
  Age: 15 Year
  Sex: Female
  Weight: 75.7507 kg

DRUGS (2)
  1. AVELOX [Suspect]
     Indication: PNEUMONIA
     Dosage: 400 MG, ONCE, ORAL
     Route: 048
     Dates: start: 20040506, end: 20040507
  2. ZITHROMAX [Concomitant]

REACTIONS (1)
  - GRAND MAL CONVULSION [None]
